FAERS Safety Report 24956740 (Version 2)
Quarter: 2025Q1

REPORT INFORMATION
  Report Type: Spontaneous
  Country: US (occurrence: US)
  Receive Date: 20250211
  Receipt Date: 20250212
  Transmission Date: 20250408
  Serious: Yes (Other)
  Sender: PFIZER
  Company Number: US-PFIZER INC-202500029515

PATIENT
  Age: 81 Year
  Sex: Male
  Weight: 68.04 kg

DRUGS (9)
  1. VYNDAMAX [Suspect]
     Active Substance: TAFAMIDIS
     Indication: Cardiac amyloidosis
     Dosage: 165 MG, 1X/DAY
     Dates: start: 202408
  2. AMIODARONE [Concomitant]
     Active Substance: AMIODARONE
  3. ELIQUIS [Concomitant]
     Active Substance: APIXABAN
  4. ASPIRIN [Concomitant]
     Active Substance: ASPIRIN
  5. PROSCAR [Concomitant]
     Active Substance: FINASTERIDE
  6. LASIX [Concomitant]
     Active Substance: FUROSEMIDE
  7. JARDIANCE [Concomitant]
     Active Substance: EMPAGLIFLOZIN
  8. MICARDIS [Concomitant]
     Active Substance: TELMISARTAN
  9. URE NA [Concomitant]
     Indication: Blood sodium decreased

REACTIONS (6)
  - Implantable defibrillator insertion [Recovering/Resolving]
  - Peripheral swelling [Not Recovered/Not Resolved]
  - Skin discolouration [Unknown]
  - Blood cholesterol increased [Unknown]
  - Oedema peripheral [Not Recovered/Not Resolved]
  - Glycosylated haemoglobin increased [Unknown]

NARRATIVE: CASE EVENT DATE: 20241215
